FAERS Safety Report 6737958-1 (Version None)
Quarter: 2010Q2

REPORT INFORMATION
  Report Type: 
  Country: None (occurrence: None)
  Receive Date: 20100524
  Receipt Date: 20100326
  Transmission Date: 20101027
  Serious: Yes (Life-Threatening, Other)
  Sender: FDA-Public Use
  Company Number: A0850530A

PATIENT
  Age: 62 Year
  Sex: Female
  Weight: 98.2 kg

DRUGS (1)
  1. ARZERRA [Suspect]
     Dosage: 300MG UNKNOWN
     Route: 042
     Dates: start: 20100303

REACTIONS (1)
  - THROMBOCYTOPENIA [None]
